FAERS Safety Report 8022283-1 (Version None)
Quarter: 2012Q1

REPORT INFORMATION
  Report Type: 
  Country: None (occurrence: None)
  Receive Date: 20120104
  Receipt Date: 20111227
  Transmission Date: 20120608
  Serious: Yes (Other)
  Sender: FDA-Public Use
  Company Number: PHHY2011DE112927

PATIENT
  Sex: Female

DRUGS (1)
  1. CLOZAPINE [Suspect]
     Indication: SCHIZOPHRENIC RELATIVE
     Dosage: 125 MG, QD
     Route: 048
     Dates: start: 19980101

REACTIONS (3)
  - LEUKOPENIA [None]
  - CHRONIC LYMPHOCYTIC LEUKAEMIA [None]
  - LEUKOCYTOSIS [None]
